FAERS Safety Report 14212868 (Version 1)
Quarter: 2017Q4

REPORT INFORMATION
  Report Type: Spontaneous
  Country: US (occurrence: None)
  Receive Date: 20171121
  Receipt Date: 20171121
  Transmission Date: 20180321
  Serious: Yes (Hospitalization)
  Sender: FDA-Public Use
  Company Number: None

PATIENT
  Age: 62 Year
  Sex: Male

DRUGS (1)
  1. AMPYRA [Suspect]
     Active Substance: DALFAMPRIDINE
     Indication: MULTIPLE SCLEROSIS
     Route: 048
     Dates: start: 201006

REACTIONS (13)
  - Monocyte count increased [None]
  - Stress fracture [None]
  - Hip fracture [None]
  - Neutrophil count increased [None]
  - Haemoglobin decreased [None]
  - Red blood cell count decreased [None]
  - Blood sodium decreased [None]
  - Haematocrit decreased [None]
  - White blood cell count decreased [None]
  - Mean cell volume abnormal [None]
  - Blood chloride decreased [None]
  - Fall [None]
  - Blood urea increased [None]

NARRATIVE: CASE EVENT DATE: 20171027
